FAERS Safety Report 9467940 (Version 1)
Quarter: 2013Q3

REPORT INFORMATION
  Report Type: Spontaneous
  Country: US (occurrence: US)
  Receive Date: 20130821
  Receipt Date: 20130821
  Transmission Date: 20140515
  Serious: No
  Sender: FDA-Public Use
  Company Number: US-TEVA-427475USA

PATIENT
  Age: 25 Year
  Sex: Female
  Weight: 104.42 kg

DRUGS (2)
  1. PARAGARD 380A [Suspect]
     Indication: CONTRACEPTION
     Route: 015
     Dates: start: 20120719, end: 20130816
  2. LAMICTAL [Concomitant]
     Indication: EPILEPSY
     Route: 048

REACTIONS (5)
  - Polymenorrhoea [Unknown]
  - Menorrhagia [Unknown]
  - Menorrhagia [Unknown]
  - Dysmenorrhoea [Unknown]
  - Device expulsion [Recovered/Resolved]
